FAERS Safety Report 6963877-1 (Version None)
Quarter: 2010Q3

REPORT INFORMATION
  Report Type: 
  Country: None (occurrence: None)
  Receive Date: 20100831
  Receipt Date: 20100802
  Transmission Date: 20110219
  Serious: Yes (Other)
  Sender: FDA-Public Use
  Company Number: GER/UKI/10/0014942

PATIENT
  Age: 77 Year
  Sex: Female
  Weight: 96.5 kg

DRUGS (8)
  1. AMLODIPINE [Suspect]
     Indication: HYPERTENSION
     Dosage: 5 MG, ORAL
     Route: 048
     Dates: start: 20100719, end: 20100720
  2. ADCAL-D3 (LEKOVIT CA) [Concomitant]
  3. ASPIRIN [Concomitant]
  4. BENDROFLUMETHIAZIDE (BENDROFLUMETHIAZIDE) [Concomitant]
  5. CO-CODAMOL (PANADEINE CO) [Concomitant]
  6. GAVISCON [Concomitant]
  7. RAMIPRIL [Concomitant]
  8. TEMAZEPAM [Concomitant]

REACTIONS (7)
  - CONDITION AGGRAVATED [None]
  - HEADACHE [None]
  - HYPERTENSION [None]
  - MALAISE [None]
  - PALLOR [None]
  - TACHYCARDIA [None]
  - TREMOR [None]
